FAERS Safety Report 22612716 (Version 1)
Quarter: 2023Q2

REPORT INFORMATION
  Report Type: Report from Study
  Country: CL (occurrence: CL)
  Receive Date: 20230617
  Receipt Date: 20230617
  Transmission Date: 20230722
  Serious: Yes (Hospitalization, Other)
  Sender: FDA-Public Use
  Company Number: CL-002147023-NVSC2020CL252630

PATIENT
  Age: 66 Year
  Sex: Male

DRUGS (6)
  1. COSENTYX [Suspect]
     Active Substance: SECUKINUMAB
     Indication: Psoriatic arthropathy
     Dosage: 300 MG/KG, QMO
     Route: 058
     Dates: start: 2018
  2. COSENTYX [Suspect]
     Active Substance: SECUKINUMAB
     Dosage: 300 MG, QMO
     Route: 058
     Dates: start: 20180601
  3. COSENTYX [Suspect]
     Active Substance: SECUKINUMAB
     Dosage: 150 MG
     Route: 065
  4. COSENTYX [Suspect]
     Active Substance: SECUKINUMAB
     Dosage: 300 UNK
     Route: 065
     Dates: start: 20200901
  5. COSENTYX [Suspect]
     Active Substance: SECUKINUMAB
     Dosage: 300 MG
     Route: 065
     Dates: start: 20221006
  6. COSENTYX [Suspect]
     Active Substance: SECUKINUMAB
     Dosage: 300 MG, QMO
     Route: 058

REACTIONS (16)
  - Chest pain [Unknown]
  - Accident [Unknown]
  - Fall [Unknown]
  - Chills [Recovering/Resolving]
  - Feeling abnormal [Recovering/Resolving]
  - Malaise [Not Recovered/Not Resolved]
  - Gait inability [Not Recovered/Not Resolved]
  - Skin lesion [Not Recovered/Not Resolved]
  - Somnolence [Unknown]
  - Vomiting [Unknown]
  - Aphonia [Unknown]
  - Dysphonia [Unknown]
  - Abdominal discomfort [Unknown]
  - Balance disorder [Unknown]
  - Movement disorder [Unknown]
  - Incorrect dose administered [Not Recovered/Not Resolved]

NARRATIVE: CASE EVENT DATE: 20200101
